FAERS Safety Report 8665553 (Version 2)
Quarter: 2013Q4

REPORT INFORMATION
  Report Type: Spontaneous
  Country: US (occurrence: US)
  Receive Date: 20120716
  Receipt Date: 20131011
  Transmission Date: 20140711
  Serious: No
  Sender: FDA-Public Use
  Company Number: US-ASTRAZENECA-2012SE45820

PATIENT
  Age: 53 Year
  Sex: Female

DRUGS (22)
  1. SEROQUEL [Suspect]
     Indication: SLEEP DISORDER
     Route: 048
  2. SEROQUEL [Suspect]
     Indication: BIPOLAR DISORDER
     Route: 048
  3. SEROQUEL [Suspect]
     Indication: SLEEP DISORDER
     Route: 048
  4. SEROQUEL [Suspect]
     Indication: BIPOLAR DISORDER
     Route: 048
  5. SEROQUEL [Suspect]
     Indication: SLEEP DISORDER
     Route: 048
     Dates: end: 201309
  6. SEROQUEL [Suspect]
     Indication: BIPOLAR DISORDER
     Route: 048
     Dates: end: 201309
  7. SEROQUEL [Suspect]
     Indication: SLEEP DISORDER
     Route: 048
     Dates: start: 201309, end: 20130928
  8. SEROQUEL [Suspect]
     Indication: BIPOLAR DISORDER
     Route: 048
     Dates: start: 201309, end: 20130928
  9. SEROQUEL [Suspect]
     Indication: SLEEP DISORDER
     Route: 048
     Dates: start: 20130929
  10. SEROQUEL [Suspect]
     Indication: BIPOLAR DISORDER
     Route: 048
     Dates: start: 20130929
  11. SYMBICORT [Suspect]
     Indication: EMPHYSEMA
     Dosage: 320 MCG, TWO TIMES A DAY
     Route: 055
     Dates: end: 201309
  12. SYMBICORT [Suspect]
     Indication: EMPHYSEMA
     Dosage: 160/4.5, TWO PUFFS, TWO TIMES A DAY
     Route: 055
     Dates: end: 201309
  13. LITHIUM [Concomitant]
  14. ENLAPRIL HCTZ [Concomitant]
     Indication: HYPERTENSION
  15. VALIUM [Concomitant]
     Indication: ANXIETY
  16. LEVOXYL [Concomitant]
     Indication: HYPOTHYROIDISM
  17. PROZAC [Concomitant]
     Indication: DEPRESSION
  18. PROZAC [Concomitant]
     Indication: ANGER
  19. ALBUTEROL [Concomitant]
     Indication: EMPHYSEMA
  20. SPIREVA [Concomitant]
     Route: 048
  21. ALBUTEROL NEBULIZER [Concomitant]
     Indication: EMPHYSEMA
     Dosage: PRN
  22. OTC MEDICATIONS [Concomitant]
     Indication: GASTROOESOPHAGEAL REFLUX DISEASE

REACTIONS (13)
  - Insomnia [Unknown]
  - Depression [Unknown]
  - Anxiety [Unknown]
  - Panic attack [Unknown]
  - Ear discomfort [Unknown]
  - Gastrooesophageal reflux disease [Unknown]
  - Adverse event [Unknown]
  - Emphysema [Unknown]
  - Weight increased [Unknown]
  - Restlessness [Unknown]
  - Off label use [Unknown]
  - Drug dose omission [Unknown]
  - Intentional drug misuse [Unknown]
